FAERS Safety Report 5520363-3 (Version None)
Quarter: 2007Q4

REPORT INFORMATION
  Report Type: 
  Country: None (occurrence: None)
  Receive Date: 20071116
  Receipt Date: 20071116
  Transmission Date: 20080405
  Serious: Yes (Hospitalization)
  Sender: FDA-Public Use
  Company Number: None

PATIENT
  Age: 41 Year
  Sex: Female

DRUGS (1)
  1. TRASTUZUMAB [Suspect]
     Indication: BREAST CANCER
     Dosage: IV
     Route: 042
     Dates: start: 20070921

REACTIONS (5)
  - ADVERSE DRUG REACTION [None]
  - CHILLS [None]
  - DYSPNOEA [None]
  - FLUSHING [None]
  - HEADACHE [None]
